FAERS Safety Report 20843434 (Version 1)
Quarter: 2022Q2

REPORT INFORMATION
  Report Type: Spontaneous
  Country: US (occurrence: US)
  Receive Date: 20220518
  Receipt Date: 20220518
  Transmission Date: 20220720
  Serious: No
  Sender: FDA-Public Use
  Company Number: US-APOTEX-2021AP019980

PATIENT
  Age: 64 Year
  Sex: Female

DRUGS (3)
  1. KETOTIFEN FUMARATE [Suspect]
     Active Substance: KETOTIFEN FUMARATE
     Indication: Conjunctivitis
     Dosage: UNK
     Route: 065
  2. TOBRAMYCIN AND DEXAMETHASONE [Suspect]
     Active Substance: DEXAMETHASONE\TOBRAMYCIN
     Indication: Conjunctivitis
     Dosage: UNK
     Route: 065
  3. LOTEPREDNOL [Suspect]
     Active Substance: LOTEPREDNOL
     Indication: Conjunctivitis
     Dosage: UNK
     Route: 065

REACTIONS (3)
  - Dacryostenosis acquired [Recovered/Resolved]
  - Ocular toxicity [Recovered/Resolved]
  - Inflammation [Recovered/Resolved]
